FAERS Safety Report 8134836-0 (Version None)
Quarter: 2012Q1

REPORT INFORMATION
  Report Type: 
  Country: None (occurrence: None)
  Receive Date: 20120214
  Receipt Date: 20120209
  Transmission Date: 20120608
  Serious: Yes (Hospitalization, Disabling, Other)
  Sender: FDA-Public Use
  Company Number: US-PFIZER INC-2011297630

PATIENT
  Sex: Female

DRUGS (3)
  1. CHANTIX [Suspect]
     Indication: SMOKING CESSATION THERAPY
     Dosage: UNK
     Dates: start: 20090501, end: 20100101
  2. WARFARIN SODIUM [Concomitant]
     Indication: ANTICOAGULANT THERAPY
     Dosage: UNK
     Dates: start: 20050101
  3. TRIAMCINOLONE [Concomitant]
     Indication: HYPERTENSION
     Dosage: UNK
     Dates: start: 20040101

REACTIONS (11)
  - INJURY [None]
  - MENTAL DISORDER [None]
  - DEPRESSION [None]
  - ANXIETY [None]
  - AGGRESSION [None]
  - INSOMNIA [None]
  - SUICIDE ATTEMPT [None]
  - DISTURBANCE IN ATTENTION [None]
  - ALCOHOL ABUSE [None]
  - AMNESIA [None]
  - INTENTIONAL OVERDOSE [None]
